FAERS Safety Report 10566932 (Version 1)
Quarter: 2014Q4

REPORT INFORMATION
  Report Type: Spontaneous
  Country: US (occurrence: US)
  Receive Date: 20141105
  Receipt Date: 20141105
  Transmission Date: 20150529
  Serious: No
  Sender: FDA-Public Use
  Company Number: US-BAYER-2014-163200

PATIENT
  Age: 86 Year
  Sex: Female
  Weight: 78.5 kg

DRUGS (3)
  1. ALEVE [Suspect]
     Active Substance: NAPROXEN SODIUM
     Dosage: 2 DF, QD
     Route: 048
  2. ALEVE PM [Suspect]
     Active Substance: DIPHENHYDRAMINE HYDROCHLORIDE\NAPROXEN SODIUM
     Indication: MUSCULOSKELETAL PAIN
     Dosage: 2 DF, QD
     Route: 048
     Dates: start: 20141028
  3. ALEVE [Suspect]
     Active Substance: NAPROXEN SODIUM
     Dosage: 2 DF, BID
     Route: 048

REACTIONS (7)
  - Tremor [Recovered/Resolved]
  - Drug ineffective [Unknown]
  - Extra dose administered [Unknown]
  - Drug ineffective [Unknown]
  - Incorrect drug administration duration [Unknown]
  - Wrong technique in drug usage process [Unknown]
  - Abdominal pain upper [Recovered/Resolved]

NARRATIVE: CASE EVENT DATE: 20141028
